FAERS Safety Report 14219606 (Version 2)
Quarter: 2017Q4

REPORT INFORMATION
  Report Type: Report from Study
  Country: IT (occurrence: IT)
  Receive Date: 20171123
  Receipt Date: 20171124
  Transmission Date: 20180321
  Serious: Yes (Death)
  Sender: FDA-Public Use
  Company Number: IT-ASTRAZENECA-2017SF18471

PATIENT
  Age: 812 Month
  Sex: Male

DRUGS (12)
  1. TAGRISSO [Suspect]
     Active Substance: OSIMERTINIB
     Indication: NON-SMALL CELL LUNG CANCER
     Route: 048
     Dates: start: 20161207, end: 20170328
  2. TAGRISSO [Suspect]
     Active Substance: OSIMERTINIB
     Indication: NON-SMALL CELL LUNG CANCER
     Route: 048
     Dates: start: 20170421, end: 20170808
  3. LASIX [Concomitant]
     Active Substance: FUROSEMIDE
     Indication: CARDIAC FAILURE
     Dates: start: 20161122
  4. NEXIUM [Concomitant]
     Active Substance: ESOMEPRAZOLE MAGNESIUM
     Indication: PROPHYLAXIS AGAINST GASTROINTESTINAL ULCER
     Dates: start: 20161130
  5. EUTIROX [Concomitant]
     Active Substance: LEVOTHYROXINE SODIUM
     Indication: THYROIDECTOMY
     Dates: start: 20120101
  6. SOLDESAM [Concomitant]
     Active Substance: DEXAMETHASONE
     Indication: NUTRITIONAL SUPPLEMENTATION
     Dates: start: 20161121
  7. ACTONEL [Concomitant]
     Active Substance: RISEDRONATE SODIUM
     Indication: COSTAL CARTILAGE FRACTURE
     Dates: start: 20161130
  8. TAGRISSO [Suspect]
     Active Substance: OSIMERTINIB
     Indication: NON-SMALL CELL LUNG CANCER
     Route: 048
     Dates: start: 20161111, end: 20161114
  9. TAGRISSO [Concomitant]
     Active Substance: OSIMERTINIB
     Indication: NON-SMALL CELL LUNG CANCER
     Dates: start: 20171027
  10. TAGRISSO [Suspect]
     Active Substance: OSIMERTINIB
     Indication: NON-SMALL CELL LUNG CANCER
     Route: 048
     Dates: start: 20161003, end: 20161028
  11. TAGRISSO [Suspect]
     Active Substance: OSIMERTINIB
     Indication: NON-SMALL CELL LUNG CANCER
     Route: 048
     Dates: start: 20170906, end: 20171026
  12. ARIXTRA [Concomitant]
     Active Substance: FONDAPARINUX SODIUM
     Indication: PULMONARY EMBOLISM
     Dates: start: 20161130

REACTIONS (1)
  - Large intestine perforation [Fatal]

NARRATIVE: CASE EVENT DATE: 20171116
